FAERS Safety Report 18328699 (Version 1)
Quarter: 2020Q3

REPORT INFORMATION
  Report Type: Spontaneous
  Country: GB (occurrence: GB)
  Receive Date: 20200930
  Receipt Date: 20200930
  Transmission Date: 20201103
  Serious: Yes (Other)
  Sender: FDA-Public Use
  Company Number: GB-ACCORD-203175

PATIENT
  Age: 49 Year
  Sex: Male
  Weight: 88 kg

DRUGS (18)
  1. AMITRIPTYLINE [Suspect]
     Active Substance: AMITRIPTYLINE
     Indication: NEURALGIA
     Route: 048
  2. METFORMIN [Concomitant]
     Active Substance: METFORMIN HYDROCHLORIDE
  3. GABAPENTIN. [Concomitant]
     Active Substance: GABAPENTIN
  4. LAMOTRIGIN [Concomitant]
     Active Substance: LAMOTRIGINE
  5. ATORVASTATIN GENERICS UK [Concomitant]
  6. LANSOPRAZOL [Concomitant]
     Active Substance: LANSOPRAZOLE
  7. ACETYLSALICYLIC ACID [Concomitant]
     Active Substance: ASPIRIN
  8. SODIUM ALGINATE [Concomitant]
     Active Substance: SODIUM ALGINATE
  9. BACLOFEN. [Concomitant]
     Active Substance: BACLOFEN
  10. GLICLAZIDE [Concomitant]
     Active Substance: GLICLAZIDE
  11. DULAGLUTIDE. [Concomitant]
     Active Substance: DULAGLUTIDE
  12. RAMIPRIL. [Concomitant]
     Active Substance: RAMIPRIL
  13. BISOPROLOL [Concomitant]
     Active Substance: BISOPROLOL
  14. LINAGLIPTIN [Concomitant]
     Active Substance: LINAGLIPTIN
  15. DOCUSATE [Concomitant]
     Active Substance: DOCUSATE
  16. MARO [Concomitant]
     Dosage: PROLONGED RELEASE
  17. CYCLIZINE [Concomitant]
     Active Substance: CYCLIZINE
  18. LAXIDO [Concomitant]
     Active Substance: POLYETHYLENE GLYCOL 3350\POTASSIUM CHLORIDE\SODIUM BICARBONATE\SODIUM CHLORIDE

REACTIONS (4)
  - Sensation of foreign body [Recovered/Resolved]
  - Throat irritation [Not Recovered/Not Resolved]
  - Retching [Unknown]
  - Oropharyngeal pain [Unknown]

NARRATIVE: CASE EVENT DATE: 20200909
